FAERS Safety Report 6712197-9 (Version None)
Quarter: 2010Q2

REPORT INFORMATION
  Report Type: 
  Country: None (occurrence: None)
  Receive Date: 20100505
  Receipt Date: 20100423
  Transmission Date: 20101027
  Serious: Yes (Other)
  Sender: FDA-Public Use
  Company Number: SE-PFIZER INC-2010052745

PATIENT
  Age: 59 Year
  Sex: Female
  Weight: 50 kg

DRUGS (20)
  1. FLUCONAZOLE [Suspect]
     Indication: CANDIDIASIS
     Dosage: 400 MG DAILY
     Dates: start: 20080101, end: 20080101
  2. PHENYTOIN SODIUM [Interacting]
     Indication: BEHCET'S SYNDROME
     Dosage: 600 MG DAILY
     Dates: end: 20080101
  3. AZATHIOPRINE [Concomitant]
  4. ALFACALCIDOL [Concomitant]
  5. PREDNISOLONE [Concomitant]
  6. AMPICILLIN [Concomitant]
  7. AMOXICILLIN [Concomitant]
  8. CALCIUM CARBONATE [Concomitant]
  9. CLONIDINE [Concomitant]
  10. CITALOPRAM [Concomitant]
  11. FUROSEMIDE [Concomitant]
  12. CLONAZEPAM [Concomitant]
  13. ZOPICLONE [Concomitant]
  14. POTASSIUM [Concomitant]
  15. LOPERAMIDE [Concomitant]
  16. METHADONE [Concomitant]
  17. GABAPENTIN [Concomitant]
  18. PANTOPRAZOLE [Concomitant]
  19. METOCLOPRAMIDE [Concomitant]
  20. PROPIOMAZINE [Concomitant]

REACTIONS (6)
  - ALTERED STATE OF CONSCIOUSNESS [None]
  - ATAXIA [None]
  - COGNITIVE DISORDER [None]
  - DRUG INTERACTION [None]
  - FATIGUE [None]
  - GAIT DISTURBANCE [None]
